FAERS Safety Report 15939875 (Version 3)
Quarter: 2019Q3

REPORT INFORMATION
  Report Type: Spontaneous
  Country: US (occurrence: US)
  Receive Date: 20190208
  Receipt Date: 20190731
  Transmission Date: 20191004
  Serious: Yes (Other)
  Sender: FDA-Public Use
  Company Number: US-ASTRAZENECA-2019SE09773

PATIENT
  Age: 23287 Day
  Sex: Female

DRUGS (26)
  1. NEXIUM [Suspect]
     Active Substance: ESOMEPRAZOLE MAGNESIUM
     Indication: GASTROOESOPHAGEAL REFLUX DISEASE
     Route: 048
     Dates: start: 20140622
  2. PLAVIX [Concomitant]
     Active Substance: CLOPIDOGREL BISULFATE
     Dates: start: 20140527
  3. ESTRADIOL. [Concomitant]
     Active Substance: ESTRADIOL
     Dates: start: 20140527
  4. DEXILANT [Suspect]
     Active Substance: DEXLANSOPRAZOLE
     Indication: GASTROOESOPHAGEAL REFLUX DISEASE
     Route: 065
     Dates: start: 2015, end: 2016
  5. METFORMIN [Concomitant]
     Active Substance: METFORMIN HYDROCHLORIDE
     Dates: start: 20140527
  6. ALPRAZOLAM. [Concomitant]
     Active Substance: ALPRAZOLAM
     Dates: start: 20140527
  7. PRILOSEC [Suspect]
     Active Substance: OMEPRAZOLE MAGNESIUM
     Route: 048
     Dates: start: 20140622
  8. AMITIZA [Concomitant]
     Active Substance: LUBIPROSTONE
     Dates: start: 20140527
  9. METFORMIN HYDROCHLORIDE. [Concomitant]
     Active Substance: METFORMIN HYDROCHLORIDE
     Dates: start: 20140622
  10. CRESTOR [Concomitant]
     Active Substance: ROSUVASTATIN CALCIUM
     Dates: start: 20140527
  11. OXYCODONE [Concomitant]
     Active Substance: OXYCODONE
     Dates: start: 20140527
  12. NEXIUM [Suspect]
     Active Substance: ESOMEPRAZOLE MAGNESIUM
     Indication: GASTROOESOPHAGEAL REFLUX DISEASE
     Route: 048
     Dates: start: 2014, end: 2016
  13. LEVOTHYROXINE. [Concomitant]
     Active Substance: LEVOTHYROXINE
     Dosage: 88 MCG
     Dates: start: 20141202
  14. METOPROLOL SUCCINATE. [Concomitant]
     Active Substance: METOPROLOL SUCCINATE
     Dates: start: 20140730
  15. KLOR-CON [Concomitant]
     Active Substance: POTASSIUM CHLORIDE
     Dates: start: 20140527
  16. PAROXETINE. [Concomitant]
     Active Substance: PAROXETINE
     Dates: start: 20140527
  17. BETHANECHOL [Concomitant]
     Active Substance: BETHANECHOL
     Dates: start: 20140527
  18. ASPIRIN. [Concomitant]
     Active Substance: ASPIRIN
     Dates: start: 20140527
  19. VALSARTAN. [Concomitant]
     Active Substance: VALSARTAN
     Dates: start: 20140527
  20. RANITIDINE. [Concomitant]
     Active Substance: RANITIDINE
     Dates: start: 20140527
  21. LOSARTAN POTASSIUM. [Concomitant]
     Active Substance: LOSARTAN POTASSIUM
     Dates: start: 20141231
  22. NEXIUM [Suspect]
     Active Substance: ESOMEPRAZOLE MAGNESIUM
     Indication: GASTROOESOPHAGEAL REFLUX DISEASE
     Route: 048
     Dates: start: 20140622
  23. COLACE [Concomitant]
     Active Substance: DOCUSATE SODIUM
     Dates: start: 20140527
  24. MELATONIN [Concomitant]
     Active Substance: MELATONIN
     Dates: start: 20140527
  25. MACRODANTIN [Concomitant]
     Active Substance: NITROFURANTOIN
     Dates: start: 20140527
  26. RANEXA [Concomitant]
     Active Substance: RANOLAZINE
     Dates: start: 20140527

REACTIONS (6)
  - Rebound acid hypersecretion [Unknown]
  - Nephropathy [Not Recovered/Not Resolved]
  - Tubulointerstitial nephritis [Unknown]
  - Chronic kidney disease [Unknown]
  - Nephrogenic anaemia [Unknown]
  - Renal injury [Unknown]

NARRATIVE: CASE EVENT DATE: 20150414
